FAERS Safety Report 5324578-9 (Version None)
Quarter: 2007Q2

REPORT INFORMATION
  Report Type: 
  Country: None (occurrence: None)
  Receive Date: 20070514
  Receipt Date: 20070507
  Transmission Date: 20071010
  Serious: Yes (Hospitalization)
  Sender: FDA-Public Use
  Company Number: GB-PFIZER INC-2007036819

PATIENT
  Age: 28 Year
  Sex: Male

DRUGS (2)
  1. SOMAVERT [Suspect]
     Indication: ACROMEGALY
  2. SANDOSTATIN [Suspect]
     Indication: ACROMEGALY
     Dosage: FREQ:MONTLHY

REACTIONS (3)
  - BILIARY COLIC [None]
  - CHOLELITHIASIS [None]
  - INSULIN-LIKE GROWTH FACTOR INCREASED [None]
